FAERS Safety Report 8550386-1 (Version None)
Quarter: 2012Q3

REPORT INFORMATION
  Report Type: 
  Country: None (occurrence: None)
  Receive Date: 20120730
  Receipt Date: 20120718
  Transmission Date: 20120928
  Serious: Yes (Hospitalization)
  Sender: FDA-Public Use
  Company Number: FR-009507513-1207FRA011353

PATIENT

DRUGS (7)
  1. PREDNISONE TAB [Concomitant]
  2. RAPAMUNE [Concomitant]
  3. NEXIUM [Concomitant]
  4. INVANZ [Suspect]
     Dosage: UNK
     Route: 042
     Dates: end: 20110903
  5. CELLCEPT [Concomitant]
  6. VALGANCICLOVIR [Suspect]
     Dosage: 1 DF, BID
     Route: 048
     Dates: start: 20110801, end: 20110903
  7. BACTRIM DS [Suspect]
     Indication: ANTIFUNGAL PROPHYLAXIS
     Dosage: 1 DF, QD
     Route: 048
     Dates: start: 20110801, end: 20110903

REACTIONS (6)
  - CONFUSIONAL STATE [None]
  - GAIT DISTURBANCE [None]
  - DISORIENTATION [None]
  - CEREBELLAR SYNDROME [None]
  - HALLUCINATION, AUDITORY [None]
  - HALLUCINATION, VISUAL [None]
